FAERS Safety Report 8431016-6 (Version None)
Quarter: 2012Q2

REPORT INFORMATION
  Report Type: 
  Country: None (occurrence: None)
  Receive Date: 20120612
  Receipt Date: 20120604
  Transmission Date: 20120825
  Serious: Yes (Other)
  Sender: FDA-Public Use
  Company Number: DE-B.I. PHARMACEUTICALS,INC./RIDGEFIELD-2012-DE-01418DE

PATIENT
  Sex: Male
  Weight: 90 kg

DRUGS (2)
  1. PRAMIPEXOLE DIHYDROCHLORIDE [Suspect]
     Dosage: 5.6 MG
     Route: 048
     Dates: start: 20120602, end: 20120603
  2. PRAMIPEXOLE DIHYDROCHLORIDE [Suspect]
     Dosage: 1.4 MG
     Route: 048

REACTIONS (4)
  - DRUG ADMINISTRATION ERROR [None]
  - NAUSEA [None]
  - VOMITING [None]
  - HYPOTONIA [None]
